FAERS Safety Report 16494702 (Version 4)
Quarter: 2019Q4

REPORT INFORMATION
  Report Type: Report from Study
  Country: DE (occurrence: DE)
  Receive Date: 20190628
  Receipt Date: 20191108
  Transmission Date: 20200122
  Serious: Yes (Death, Hospitalization)
  Sender: FDA-Public Use
  Company Number: DE-EISAI MEDICAL RESEARCH-EC-2019-055892

PATIENT
  Age: 64 Year
  Sex: Male
  Weight: 60 kg

DRUGS (26)
  1. CALCIUM [Concomitant]
     Active Substance: CALCIUM
  2. L-THYROX [Concomitant]
     Active Substance: LEVOTHYROXINE SODIUM
  3. CALCITRIOL. [Concomitant]
     Active Substance: CALCITRIOL
  4. DEKRISTOL [Concomitant]
     Active Substance: CHOLECALCIFEROL
  5. AMITRIPTYLIN [Concomitant]
     Active Substance: AMITRIPTYLINE
  6. PREGABALIN. [Concomitant]
     Active Substance: PREGABALIN
  7. LOPERAMIDE [Concomitant]
     Active Substance: LOPERAMIDE
  8. LENVATINIB [Suspect]
     Active Substance: LENVATINIB
     Route: 048
     Dates: start: 20190722, end: 20190722
  9. OXYCODONE [Concomitant]
     Active Substance: OXYCODONE
  10. ZOMETA [Concomitant]
     Active Substance: ZOLEDRONIC ACID
  11. LENVATINIB [Suspect]
     Active Substance: LENVATINIB
     Indication: THYROID CANCER
     Route: 048
     Dates: start: 20181018, end: 20190429
  12. PANTOPRAZOL [Concomitant]
     Active Substance: PANTOPRAZOLE SODIUM
  13. ALLOPURINOL. [Concomitant]
     Active Substance: ALLOPURINOL
  14. FRESUBIN [Concomitant]
     Active Substance: AMINO ACIDS\DEXTROSE\ELECTROLYTES NOS\SOYBEAN OIL\VITAMINS
  15. SULTAMICILLIN [Concomitant]
     Active Substance: SULTAMICILLIN
  16. PARACETAMOL [Concomitant]
     Active Substance: ACETAMINOPHEN
  17. ROXI ARISTO [Concomitant]
  18. LENVATINIB [Suspect]
     Active Substance: LENVATINIB
     Route: 048
     Dates: start: 20190526, end: 20190619
  19. ACC [Concomitant]
     Active Substance: ACETYLCYSTEINE
  20. SPIRONOLACTON [Concomitant]
     Active Substance: SPIRONOLACTONE
  21. LENVATINIB [Suspect]
     Active Substance: LENVATINIB
     Route: 048
     Dates: start: 20190723, end: 20191002
  22. BISOPROLOL [Concomitant]
     Active Substance: BISOPROLOL
  23. MAGNESIUM VERLA [Concomitant]
     Active Substance: MAGNESIUM
  24. SALBUBRONCH ELEXIER [Concomitant]
  25. AZITHROMYCIN ANHYDROUS. [Concomitant]
     Active Substance: AZITHROMYCIN ANHYDROUS
  26. FUROSEMID [Concomitant]
     Active Substance: FUROSEMIDE

REACTIONS (3)
  - Pleural effusion [Recovering/Resolving]
  - Haematuria [Recovered/Resolved]
  - Pneumonia [Fatal]

NARRATIVE: CASE EVENT DATE: 20190430
